FAERS Safety Report 17483428 (Version 3)
Quarter: 2020Q4

REPORT INFORMATION
  Report Type: Spontaneous
  Country: US (occurrence: US)
  Receive Date: 20200302
  Receipt Date: 20201127
  Transmission Date: 20210113
  Serious: No
  Sender: FDA-Public Use
  Company Number: US-VERTEX PHARMACEUTICALS-2020-003746

PATIENT
  Age: 83 Year
  Sex: Male

DRUGS (11)
  1. ADVAIR HFA [Concomitant]
     Active Substance: FLUTICASONE PROPIONATE\SALMETEROL XINAFOATE
  2. MAGNESIUM [Concomitant]
     Active Substance: MAGNESIUM
  3. VENTOLINE [SALBUTAMOL] [Concomitant]
     Active Substance: ALBUTEROL SULFATE
  4. TRIKAFTA [Suspect]
     Active Substance: ELEXACAFTOR\IVACAFTOR\TEZACAFTOR
     Indication: CYSTIC FIBROSIS
     Dosage: 2 TABS (100 MG ELEXACAFTOR/50 MG TEZACAFTOR/75 MG IVACAFTOR) AM AND 1 TAB(150 MG IVACAFTOR) PM
     Route: 048
     Dates: start: 20200214
  5. VITAMIN C [Concomitant]
     Active Substance: ASCORBIC ACID
  6. VITAMIN D [COLECALCIFEROL] [Concomitant]
     Active Substance: CHOLECALCIFEROL
  7. ASPIRIN [ACETYLSALICYLIC ACID] [Concomitant]
     Active Substance: ASPIRIN
  8. CALCIUM [Concomitant]
     Active Substance: CALCIUM
  9. OMEPRAZOLE. [Concomitant]
     Active Substance: OMEPRAZOLE
  10. LORATADINE. [Concomitant]
     Active Substance: LORATADINE
  11. MUCINEX [Concomitant]
     Active Substance: GUAIFENESIN

REACTIONS (2)
  - Cough [Unknown]
  - Gastrointestinal infection [Recovered/Resolved]

NARRATIVE: CASE EVENT DATE: 202002
